FAERS Safety Report 10572597 (Version 1)
Quarter: 2014Q4

REPORT INFORMATION
  Report Type: Spontaneous
  Country: US (occurrence: None)
  Receive Date: 20141107
  Receipt Date: 20141107
  Transmission Date: 20150529
  Serious: Yes (Death)
  Sender: FDA-Public Use
  Company Number: None

PATIENT
  Age: 58 Year
  Sex: Female
  Weight: 157.3 kg

DRUGS (1)
  1. LISINOPRIL. [Suspect]
     Active Substance: LISINOPRIL
     Indication: HYPERTENSION
     Dosage: NOT AVAILABLE
     Route: 048
     Dates: start: 20140930, end: 20141006

REACTIONS (3)
  - Respiratory failure [None]
  - Angioedema [None]
  - Cardio-respiratory arrest [None]

NARRATIVE: CASE EVENT DATE: 20141007
